FAERS Safety Report 9799547 (Version 1)
Quarter: 2014Q1

REPORT INFORMATION
  Report Type: Spontaneous
  Country: US (occurrence: US)
  Receive Date: 20140106
  Receipt Date: 20140106
  Transmission Date: 20141002
  Serious: No
  Sender: FDA-Public Use
  Company Number: US-GILEAD-2010-0030149

PATIENT
  Age: 68 Year
  Sex: Female
  Weight: 101.6 kg

DRUGS (8)
  1. LETAIRIS [Suspect]
     Indication: PULMONARY ARTERIAL HYPERTENSION
     Route: 048
     Dates: start: 20100416
  2. TRACLEER [Concomitant]
  3. CIPROFLOXACIN [Concomitant]
  4. TOPROL XL [Concomitant]
  5. ASPIRIN [Concomitant]
  6. PREDNISONE [Concomitant]
  7. LASIX [Concomitant]
  8. KLOR-CON [Concomitant]

REACTIONS (1)
  - Oedema [Unknown]
